FAERS Safety Report 7603005-2 (Version None)
Quarter: 2011Q2

REPORT INFORMATION
  Report Type: 
  Country: None (occurrence: None)
  Receive Date: 20110630
  Receipt Date: 20110617
  Transmission Date: 20111010
  Serious: Yes (Death)
  Sender: FDA-Public Use
  Company Number: JP-2011-10761

PATIENT
  Age: 73 Year
  Sex: Female
  Weight: 52.4 kg

DRUGS (20)
  1. FOSAMAC (ALENDRONATE SODIUM) TABLET [Concomitant]
  2. REVATIO (SILDENAFIL CITRATE) TABLET [Concomitant]
  3. DIART (AZOSEMIDE) TABLET [Concomitant]
  4. ALFAROL (ALFACALCIDOL) CAPSULE [Concomitant]
  5. ALDACTONE [Concomitant]
  6. HACHIMIJIO-GAN (HERBAL EXTRACT NOS) GRANULES [Concomitant]
  7. LASIX [Concomitant]
  8. ALLOPURINOL [Concomitant]
  9. PREDNISOLONE (PREDNISOLONE SODIUM PHOSPHATE) TABLET [Concomitant]
  10. ZANTAC (RANITIDINE HYDROCHLORIDE) TABLET [Concomitant]
  11. WARFARIN (WARFARIN SODIUM) TABLET [Concomitant]
  12. SAMSCA [Suspect]
     Indication: CARDIAC FAILURE CHRONIC
     Dosage: 15 MG MILLIGRAM(S), QD, ORAL; 7.5 MG MILLIGRAM(S), QD, ORAL
     Route: 048
     Dates: start: 20110428, end: 20110428
  13. SAMSCA [Suspect]
     Indication: CARDIAC FAILURE CHRONIC
     Dosage: 15 MG MILLIGRAM(S), QD, ORAL; 7.5 MG MILLIGRAM(S), QD, ORAL
     Route: 048
     Dates: start: 20110429, end: 20110430
  14. ACARDI (PIMOBENDAN) CAPSULE [Concomitant]
  15. CETAPRIL (ALACEPRIL) TABLET [Concomitant]
  16. FERO-GRADUMET (FERROUS SULFATE) TABLET [Concomitant]
  17. KALGUT (DENOPAMINE) TABLET [Concomitant]
  18. MEXITIL [Concomitant]
  19. AMARYL [Concomitant]
  20. LANIRAPID (METILDIGOXIN) TABLET [Concomitant]

REACTIONS (1)
  - CARDIAC FAILURE [None]
